FAERS Safety Report 5154494-7 (Version None)
Quarter: 2006Q4

REPORT INFORMATION
  Report Type: 
  Country: None (occurrence: None)
  Receive Date: 20061114
  Receipt Date: 20061106
  Transmission Date: 20070319
  Serious: Yes (Hospitalization, Other)
  Sender: FDA-Public Use
  Company Number: FRWYE800103JUN04

PATIENT
  Age: 53 Year
  Sex: Female

DRUGS (3)
  1. RAPAMUNE [Suspect]
     Indication: PROPHYLAXIS AGAINST TRANSPLANT REJECTION
     Dosage: 4 MG 1X PER 1 DAY ORAL
     Route: 048
     Dates: start: 20030504
  2. CELLCEPT [Suspect]
     Indication: PROPHYLAXIS AGAINST TRANSPLANT REJECTION
     Dosage: 750 MG 1X PER 1 DAY ORAL
     Route: 048
     Dates: start: 20030504
  3. PREDNISONE [Suspect]
     Indication: PROPHYLAXIS AGAINST TRANSPLANT REJECTION
     Dosage: 10 MG 1X PER 1 DAY ORAL
     Route: 048
     Dates: start: 20030504

REACTIONS (5)
  - BACTERIAL PYELONEPHRITIS [None]
  - COMPLICATIONS OF TRANSPLANTED KIDNEY [None]
  - ESCHERICHIA BACTERAEMIA [None]
  - GRAFT INFECTION [None]
  - RENAL FAILURE ACUTE [None]
